FAERS Safety Report 11430193 (Version 2)
Quarter: 2015Q3

REPORT INFORMATION
  Report Type: Spontaneous
  Country: US (occurrence: US)
  Receive Date: 20150828
  Receipt Date: 20150904
  Transmission Date: 20151125
  Serious: No
  Sender: FDA-Public Use
  Company Number: PHEH2015US006914

PATIENT
  Age: 11 Year
  Sex: Female

DRUGS (5)
  1. TRILEPTAL [Suspect]
     Active Substance: OXCARBAZEPINE
     Dosage: UNK UNK, BID
     Route: 065
  2. KLONOPIN [Suspect]
     Active Substance: CLONAZEPAM
     Dosage: UNK,QD
     Route: 065
  3. TRILEPTAL [Suspect]
     Active Substance: OXCARBAZEPINE
     Indication: PARTIAL SEIZURES
     Dosage: UNK
     Route: 065
  4. TRILEPTAL [Suspect]
     Active Substance: OXCARBAZEPINE
     Dosage: DOSE INCREASED
     Route: 065
  5. KLONOPIN [Suspect]
     Active Substance: CLONAZEPAM
     Indication: PARTIAL SEIZURES
     Dosage: UNK
     Route: 065

REACTIONS (2)
  - Aggression [Unknown]
  - Depression [Unknown]
